FAERS Safety Report 21996040 (Version 1)
Quarter: 2023Q1

REPORT INFORMATION
  Report Type: Spontaneous
  Country: US (occurrence: US)
  Receive Date: 20230215
  Receipt Date: 20230215
  Transmission Date: 20230418
  Serious: No
  Sender: FDA-Public Use
  Company Number: US-SA-SAC20230214000483

PATIENT
  Sex: Female
  Weight: 67.1 kg

DRUGS (2)
  1. DUPIXENT [Suspect]
     Active Substance: DUPILUMAB
     Indication: Dermatitis atopic
     Dosage: UNK 1X
  2. DUPIXENT [Suspect]
     Active Substance: DUPILUMAB
     Dosage: 2DF QOW
     Route: 058

REACTIONS (1)
  - Extra dose administered [Unknown]
